FAERS Safety Report 9076249 (Version 1)
Quarter: 2013Q1

REPORT INFORMATION
  Report Type: Report from Study
  Country: US (occurrence: US)
  Receive Date: 20130129
  Receipt Date: 20130129
  Transmission Date: 20140127
  Serious: No
  Sender: FDA-Public Use
  Company Number: US-ABBOTT-12P-163-0921649-00

PATIENT
  Age: 27 Year
  Sex: Female

DRUGS (6)
  1. HUMIRA 40 MG/0.8 ML PEN [Suspect]
     Indication: PSORIASIS
     Route: 058
     Dates: start: 20120309, end: 20120309
  2. HUMIRA 40 MG/0.8 ML PEN [Suspect]
     Route: 058
     Dates: start: 20110316, end: 20120316
  3. HUMIRA 40 MG/0.8 ML PEN [Suspect]
     Route: 058
     Dates: start: 20120330
  4. HUMIRA 40 MG/0.8 ML PEN [Suspect]
     Route: 058
     Dates: start: 20120426
  5. GEMFIBROZIL [Concomitant]
     Indication: BLOOD CHOLESTEROL INCREASED
     Dosage: DAILY
  6. PROPRANOLOL [Concomitant]
     Indication: MIGRAINE

REACTIONS (22)
  - Hyperaesthesia [Recovered/Resolved]
  - Migraine [Recovering/Resolving]
  - Fatigue [Unknown]
  - Drug dose omission [Unknown]
  - Fatigue [Unknown]
  - Migraine [Unknown]
  - Wound [Unknown]
  - Cough [Unknown]
  - Incorrect route of drug administration [Unknown]
  - Condition aggravated [Unknown]
  - Drug dose omission [Recovered/Resolved]
  - Gait disturbance [Unknown]
  - Injection site pain [Unknown]
  - Oropharyngeal pain [Unknown]
  - Oropharyngeal pain [Unknown]
  - Pain [Unknown]
  - Injection site pain [Unknown]
  - Headache [Not Recovered/Not Resolved]
  - Psoriasis [Unknown]
  - Injection site pain [Unknown]
  - Injection site pain [Unknown]
  - Injection site pain [Unknown]
